FAERS Safety Report 7829592-7 (Version None)
Quarter: 2011Q4

REPORT INFORMATION
  Report Type: 
  Country: None (occurrence: None)
  Receive Date: 20111020
  Receipt Date: 20111011
  Transmission Date: 20120403
  Serious: Yes (Other)
  Sender: FDA-Public Use
  Company Number: US-ASTRAZENECA-2011SE61259

PATIENT
  Sex: Female
  Weight: 92.5 kg

DRUGS (8)
  1. ARIMIDEX [Concomitant]
     Indication: NEOPLASM MALIGNANT
     Dosage: ONE IN THE EVENING
     Route: 048
     Dates: start: 20070101
  2. ONGLYZA [Concomitant]
     Indication: DIABETES MELLITUS
  3. GLYBURIDE [Concomitant]
     Indication: DIABETES MELLITUS
  4. BENICAR [Concomitant]
     Indication: HYPERTENSION
     Dosage: 40-25, ONE IN THE MORNING
  5. ALPRAZOLAM [Concomitant]
     Indication: ANTIDEPRESSANT THERAPY
  6. LANTUS [Concomitant]
     Indication: DIABETES MELLITUS
  7. ZOLOFT [Concomitant]
     Indication: ANTIDEPRESSANT THERAPY
  8. NEXIUM [Suspect]
     Indication: ABDOMINAL DISCOMFORT
     Dosage: ONE IN THE MORNING
     Route: 048

REACTIONS (2)
  - LYMPHOMA [None]
  - BREAST CANCER [None]
